FAERS Safety Report 6925308-7 (Version None)
Quarter: 2010Q3

REPORT INFORMATION
  Report Type: 
  Country: None (occurrence: None)
  Receive Date: 20100810
  Receipt Date: 20100802
  Transmission Date: 20110219
  Serious: Yes (Hospitalization)
  Sender: FDA-Public Use
  Company Number: TCI2010A03008

PATIENT
  Age: 60 Year
  Sex: Female

DRUGS (6)
  1. ACTOS [Suspect]
     Indication: TYPE 2 DIABETES MELLITUS
     Dosage: 15 MG (15 MG, 1 IN 1 D) PER ORAL  BEFORE START OF THE STUDY
  2. MP-513 (CODE NOT BROKEN) (ORAL ANTIDIABETICS) MP-513 OR PLACEBO [Suspect]
     Indication: TYPE 2 DIABETES MELLITUS
     Dosage: 1 IN 1 D PER ORAL
     Dates: start: 20100507, end: 20100629
  3. EURODIN 2MG. TABLETS (ESTAZOLAM) [Concomitant]
  4. LENDORMIN D (BROTIZOLAM) [Concomitant]
  5. PURSENNID (SENNA ALEXANDRINA LEAF) [Concomitant]
  6. CRESTOR [Concomitant]

REACTIONS (1)
  - GASTRIC POLYPS [None]
